FAERS Safety Report 15113691 (Version 23)
Quarter: 2020Q2

REPORT INFORMATION
  Report Type: Report from Study
  Country: DE (occurrence: DE)
  Receive Date: 20180706
  Receipt Date: 20200522
  Transmission Date: 20200713
  Serious: Yes (Other)
  Sender: FDA-Public Use
  Company Number: DE-ROCHE-2091662

PATIENT
  Age: 48 Year
  Sex: Male
  Weight: 98 kg

DRUGS (20)
  1. OCREVUS [Suspect]
     Active Substance: OCRELIZUMAB
     Route: 042
     Dates: start: 20200306
  2. CORTISONE [Suspect]
     Active Substance: CORTISONE
     Indication: PRODUCT USED FOR UNKNOWN INDICATION
     Dosage: FOR 5 DAYS 5 X500MG
     Route: 042
     Dates: start: 20180520
  3. DULOXETINE. [Concomitant]
     Active Substance: DULOXETINE
     Route: 048
     Dates: start: 20180710
  4. DULOXETINE. [Concomitant]
     Active Substance: DULOXETINE
     Route: 048
  5. OCREVUS [Suspect]
     Active Substance: OCRELIZUMAB
     Route: 042
     Dates: start: 20180319, end: 20180319
  6. OCREVUS [Suspect]
     Active Substance: OCRELIZUMAB
     Dosage: 11/SEP/2018 AND 02/SEP/2019, RECEIVED SAME SUBSEQUENT DOSE OF OCRELIZUMAB.
     Route: 042
     Dates: start: 20180821
  7. CORTISONE [Suspect]
     Active Substance: CORTISONE
     Route: 042
     Dates: start: 20190311, end: 20190311
  8. ZOPICLONE [Concomitant]
     Active Substance: ZOPICLONE
     Indication: INSOMNIA
     Route: 048
     Dates: start: 20180821
  9. FENISTIL [Concomitant]
     Active Substance: DIMETHINDENE
     Route: 042
     Dates: start: 20190311, end: 20190311
  10. CANDESARTAN. [Concomitant]
     Active Substance: CANDESARTAN
     Dosage: 14-16 MG
     Route: 065
  11. OCREVUS [Suspect]
     Active Substance: OCRELIZUMAB
     Indication: RELAPSING MULTIPLE SCLEROSIS
     Route: 042
     Dates: start: 20180305, end: 20180305
  12. CORTISONE [Suspect]
     Active Substance: CORTISONE
     Dosage: 4X 500MG
     Route: 042
     Dates: start: 201808
  13. CANDESARTAN. [Concomitant]
     Active Substance: CANDESARTAN
     Route: 065
  14. MIRTAZAPINE. [Concomitant]
     Active Substance: MIRTAZAPINE
     Dosage: IN THE EVENING
     Route: 065
  15. ZOPICLONE [Concomitant]
     Active Substance: ZOPICLONE
     Route: 048
     Dates: start: 20180821
  16. DULOXETINE. [Concomitant]
     Active Substance: DULOXETINE
     Route: 048
     Dates: start: 20180710
  17. GELOMYRTOL FORTE [Concomitant]
     Active Substance: HERBALS
  18. AMLODIPINE [Concomitant]
     Active Substance: AMLODIPINE BESYLATE
     Route: 065
  19. PARACETAMOL [Concomitant]
     Active Substance: ACETAMINOPHEN
     Route: 065
  20. ACC AKUT [Concomitant]
     Active Substance: ACETYLCYSTEINE

REACTIONS (29)
  - Hypersensitivity [Unknown]
  - Pyrexia [Recovered/Resolved]
  - Body temperature increased [Not Recovered/Not Resolved]
  - Nervousness [Recovering/Resolving]
  - Nasopharyngitis [Recovered/Resolved]
  - Paraesthesia [Not Recovered/Not Resolved]
  - White blood cell count increased [Not Recovered/Not Resolved]
  - Flushing [Recovered/Resolved]
  - Arthralgia [Recovering/Resolving]
  - Pain [Unknown]
  - Fatigue [Recovered/Resolved]
  - Influenza like illness [Not Recovered/Not Resolved]
  - Blood immunoglobulin G decreased [Recovered/Resolved]
  - Myalgia [Recovering/Resolving]
  - Nasopharyngitis [Not Recovered/Not Resolved]
  - Depression [Unknown]
  - Anxiety [Unknown]
  - Infection [Recovered/Resolved]
  - Influenza like illness [Recovered/Resolved]
  - Abnormal behaviour [Recovered/Resolved]
  - Multiple sclerosis [Unknown]
  - Sensory disturbance [Not Recovered/Not Resolved]
  - Asthenia [Recovered/Resolved]
  - Erythema [Recovering/Resolving]
  - C-reactive protein increased [Recovered/Resolved]
  - Therapeutic product effect decreased [Not Recovered/Not Resolved]
  - Inappropriate schedule of product administration [Unknown]
  - Pyrexia [Recovered/Resolved]
  - Dizziness [Recovered/Resolved]

NARRATIVE: CASE EVENT DATE: 20180305
